FAERS Safety Report 6749450-9 (Version None)
Quarter: 2010Q2

REPORT INFORMATION
  Report Type: 
  Country: None (occurrence: None)
  Receive Date: 20100601
  Receipt Date: 20100517
  Transmission Date: 20101027
  Serious: No
  Sender: FDA-Public Use
  Company Number: JP-PFIZER INC-2010060826

PATIENT
  Age: 40 Year
  Sex: Female

DRUGS (7)
  1. RELPAX [Suspect]
     Indication: MIGRAINE
     Dosage: UNK
     Route: 048
     Dates: start: 20100401, end: 20100506
  2. MIGSIS [Suspect]
     Indication: MIGRAINE
     Dosage: 5 MG, 2X/DAY
     Route: 048
     Dates: start: 20100401
  3. MIGSIS [Suspect]
     Dates: start: 20100401
  4. GANATON [Concomitant]
  5. HI-Z [Concomitant]
  6. SEDIEL [Concomitant]
  7. LUVOX [Concomitant]

REACTIONS (5)
  - ABDOMINAL PAIN [None]
  - BLEPHAROSPASM [None]
  - DIZZINESS [None]
  - HYPOAESTHESIA [None]
  - HYPOAESTHESIA ORAL [None]
